FAERS Safety Report 8880597 (Version 2)
Quarter: 2012Q4

REPORT INFORMATION
  Report Type: 
  Country: BR (occurrence: BR)
  Receive Date: 20121031
  Receipt Date: 20121207
  Transmission Date: 20130627
  Serious: Yes (Hospitalization, Other)
  Sender: FDA-Public Use
  Company Number: BR-ASTRAZENECA-2012SE81123

PATIENT
  Age: 63 Year
  Sex: Female
  Weight: 69 kg

DRUGS (2)
  1. SELOPRESS ZOK [Suspect]
     Indication: HYPERTENSION
     Dosage: 100/12.5 MG, DAILY
     Route: 048
  2. VYTORIN [Concomitant]
     Route: 048

REACTIONS (1)
  - Device dislocation [Recovered/Resolved]
